FAERS Safety Report 19413714 (Version 1)
Quarter: 2021Q2

REPORT INFORMATION
  Report Type: Spontaneous
  Country: US (occurrence: US)
  Receive Date: 20210615
  Receipt Date: 20210615
  Transmission Date: 20210717
  Serious: No
  Sender: FDA-Public Use
  Company Number: US-AUROBINDO-AUR-APL-2020-028897

PATIENT
  Sex: Female

DRUGS (2)
  1. ELIQUIS [Concomitant]
     Active Substance: APIXABAN
     Indication: PRODUCT USED FOR UNKNOWN INDICATION
     Dosage: 2.5 MILLIGRAM, TWO TIMES A DAY
     Route: 065
  2. ESOMEPRAZOLE MAGNESIUM DELAYED?RELEASE CAPSULES 20 MG [Suspect]
     Active Substance: ESOMEPRAZOLE MAGNESIUM
     Indication: DYSPEPSIA
     Dosage: UNK
     Route: 065

REACTIONS (3)
  - Odynophagia [Unknown]
  - Dysphagia [Unknown]
  - Gastrooesophageal reflux disease [Unknown]
